FAERS Safety Report 5760268-6 (Version None)
Quarter: 2008Q2

REPORT INFORMATION
  Report Type: 
  Country: None (occurrence: None)
  Receive Date: 20080602
  Receipt Date: 20080519
  Transmission Date: 20081010
  Serious: No
  Sender: FDA-Public Use
  Company Number: 000921

PATIENT
  Age: 88 Year
  Sex: Female

DRUGS (5)
  1. PLETAL [Suspect]
     Dosage: 100 MG, QD
     Route: 048
     Dates: start: 20080411, end: 20080414
  2. HYPNOTICS AND SEDATIVES, ANTIANXIETICS [Concomitant]
  3. LASIX [Concomitant]
  4. ADONA (CARBAZOCHROME SODIUM SULFONATE) TABLET [Concomitant]
  5. ANTIEPILEPTICS [Concomitant]

REACTIONS (1)
  - NEPHROTIC SYNDROME [None]
